FAERS Safety Report 23787396 (Version 1)
Quarter: 2024Q2

REPORT INFORMATION
  Report Type: Spontaneous
  Country: US (occurrence: US)
  Receive Date: 20240426
  Receipt Date: 20240426
  Transmission Date: 20240716
  Serious: Yes (Hospitalization, Other)
  Sender: FDA-Public Use
  Company Number: US-002147023-NVSC2024US085124

PATIENT
  Age: 78 Year
  Sex: Male

DRUGS (12)
  1. DABRAFENIB [Suspect]
     Active Substance: DABRAFENIB
     Indication: Hairy cell leukaemia
     Dosage: UNK
     Route: 065
  2. DABRAFENIB [Suspect]
     Active Substance: DABRAFENIB
     Dosage: 75 MG, BID
     Route: 065
  3. TRAMETINIB [Suspect]
     Active Substance: TRAMETINIB
     Indication: Hairy cell leukaemia
     Dosage: UNK
     Route: 065
  4. TRAMETINIB [Suspect]
     Active Substance: TRAMETINIB
     Dosage: 1 MG, QD
     Route: 065
  5. CISPLATIN [Suspect]
     Active Substance: CISPLATIN
     Indication: Hairy cell leukaemia
     Dosage: UNK, QW (40MG/M2 WEEKLY WITH DAILY RADIATION V2.0)
     Route: 065
     Dates: start: 20180618, end: 20180709
  6. CISPLATIN [Suspect]
     Active Substance: CISPLATIN
     Dosage: UNK, Q3W (CONCURRENT WITH XRT)
     Route: 065
     Dates: start: 20180618, end: 20180618
  7. ERBITUX [Suspect]
     Active Substance: CETUXIMAB
     Indication: Hairy cell leukaemia
     Dosage: UNK
     Route: 065
     Dates: start: 20180709, end: 20180827
  8. CITALOPRAM [Concomitant]
     Active Substance: CITALOPRAM\CITALOPRAM HYDROBROMIDE
     Indication: Product used for unknown indication
     Dosage: 40 MG
     Route: 065
  9. LEVOTHYROXINE [Concomitant]
     Active Substance: LEVOTHYROXINE\LEVOTHYROXINE SODIUM
     Indication: Product used for unknown indication
     Dosage: 0.025 MG
     Route: 065
  10. PILOCARPINE [Concomitant]
     Active Substance: PILOCARPINE
     Indication: Product used for unknown indication
     Dosage: 5 MG
     Route: 065
  11. SYNTHROID [Concomitant]
     Active Substance: LEVOTHYROXINE SODIUM
     Indication: Product used for unknown indication
     Dosage: 25 UG
     Route: 065
  12. TOPROL XL [Concomitant]
     Active Substance: METOPROLOL SUCCINATE
     Indication: Product used for unknown indication
     Dosage: 50 MG
     Route: 065

REACTIONS (22)
  - Asthenia [Unknown]
  - Epistaxis [Unknown]
  - Pyrexia [Unknown]
  - Clostridium difficile colitis [Unknown]
  - Hairy cell leukaemia recurrent [Unknown]
  - Ejection fraction decreased [Unknown]
  - Chills [Unknown]
  - Malaise [Unknown]
  - Thrombocytopenia [Unknown]
  - Drug intolerance [Unknown]
  - Fatigue [Not Recovered/Not Resolved]
  - Pharyngitis [Unknown]
  - Oesophagitis [Unknown]
  - Vomiting [Unknown]
  - Depression [Unknown]
  - Dysphagia [Unknown]
  - Dry mouth [Unknown]
  - Somnolence [Unknown]
  - Dyspnoea exertional [Unknown]
  - Diarrhoea [Unknown]
  - Rash [Unknown]
  - Joint swelling [Unknown]

NARRATIVE: CASE EVENT DATE: 20180730
